FAERS Safety Report 9721999 (Version 2)
Quarter: 2013Q4

REPORT INFORMATION
  Report Type: Spontaneous
  Country: US (occurrence: IN)
  Receive Date: 20131202
  Receipt Date: 20131202
  Transmission Date: 20140711
  Serious: Yes (Other)
  Sender: FDA-Public Use
  Company Number: 2013SP008195

PATIENT
  Sex: 0

DRUGS (4)
  1. VANCOMYCIN [Suspect]
     Indication: FEBRILE NEUTROPENIA
     Route: 042
  2. METHOTREXATE [Suspect]
     Indication: ACUTE LYMPHOCYTIC LEUKAEMIA
  3. CEFOPERAZONE [Concomitant]
  4. AMIKACIN [Concomitant]

REACTIONS (4)
  - Drug interaction [Unknown]
  - Renal function test abnormal [Recovering/Resolving]
  - Toxicity to various agents [Unknown]
  - Mucosal inflammation [Unknown]
